FAERS Safety Report 21394192 (Version 3)
Quarter: 2022Q4

REPORT INFORMATION
  Report Type: Other
  Country: US (occurrence: None)
  Receive Date: 20220930
  Receipt Date: 20221117
  Transmission Date: 20230113
  Serious: No
  Sender: FDA-Public Use
  Company Number: US-ROCHE-3189979

PATIENT
  Age: 31 Year
  Sex: Female

DRUGS (7)
  1. OCREVUS [Suspect]
     Active Substance: OCRELIZUMAB
     Indication: Multiple sclerosis
     Dosage: DATE OF PREVIOUS INFUSION: 11/NOV/2020, 07/MAY/2020
     Route: 042
     Dates: start: 20200507, end: 20201111
  2. NICODERM CQ [Concomitant]
     Active Substance: NICOTINE
  3. VITAMIN D3 [Concomitant]
     Active Substance: CHOLECALCIFEROL
  4. ALDACTONE [Concomitant]
     Active Substance: SPIRONOLACTONE
  5. LYRICA [Concomitant]
     Active Substance: PREGABALIN
  6. PROVIGIL [Concomitant]
     Active Substance: MODAFINIL
  7. LEXAPRO [Concomitant]
     Active Substance: ESCITALOPRAM OXALATE

REACTIONS (2)
  - COVID-19 [Unknown]
  - JC polyomavirus test positive [Unknown]
